FAERS Safety Report 18355898 (Version 1)
Quarter: 2020Q4

REPORT INFORMATION
  Report Type: Spontaneous
  Country: US (occurrence: US)
  Receive Date: 20201007
  Receipt Date: 20201007
  Transmission Date: 20210114
  Serious: Yes (Hospitalization, Other)
  Sender: FDA-Public Use
  Company Number: NVSC2020US266731

PATIENT
  Sex: Female

DRUGS (2)
  1. ENTRESTO [Suspect]
     Active Substance: SACUBITRIL\VALSARTAN
     Indication: CARDIAC FAILURE
     Dosage: 100 MG, BID (49/51 MG)
     Route: 048
  2. MELOXICAM. [Interacting]
     Active Substance: MELOXICAM
     Indication: MUSCULOSKELETAL PAIN
     Dosage: UNK UNK, UNKNOWN
     Route: 065

REACTIONS (4)
  - Blood creatinine increased [Recovering/Resolving]
  - Labelled drug-drug interaction medication error [Recovering/Resolving]
  - Brain natriuretic peptide increased [Recovering/Resolving]
  - Arthralgia [Recovering/Resolving]
